FAERS Safety Report 8547817-X (Version None)
Quarter: 2012Q3

REPORT INFORMATION
  Report Type: 
  Country: None (occurrence: None)
  Receive Date: 20120727
  Receipt Date: 20120220
  Transmission Date: 20120928
  Serious: Yes (Hospitalization)
  Sender: FDA-Public Use
  Company Number: US-ASTRAZENECA-2012SE09637

PATIENT
  Age: 31 Year
  Sex: Male

DRUGS (2)
  1. TRAZODONE HCL [Concomitant]
  2. SEROQUEL [Suspect]
     Indication: BIPOLAR DISORDER
     Route: 048

REACTIONS (8)
  - POOR QUALITY SLEEP [None]
  - DEPRESSION [None]
  - INSOMNIA [None]
  - FATIGUE [None]
  - MANIA [None]
  - NERVOUSNESS [None]
  - ANXIETY [None]
  - DRUG DOSE OMISSION [None]
